FAERS Safety Report 7331587-7 (Version None)
Quarter: 2011Q1

REPORT INFORMATION
  Report Type: 
  Country: None (occurrence: None)
  Receive Date: 20110304
  Receipt Date: 20101217
  Transmission Date: 20110831
  Serious: Yes (Other)
  Sender: FDA-Public Use
  Company Number: A0900380A

PATIENT
  Age: 40 Year
  Sex: Female
  Weight: 90 kg

DRUGS (4)
  1. ATIVAN [Concomitant]
  2. LITHIUM [Concomitant]
  3. ZOLOFT [Concomitant]
  4. LAMICTAL [Suspect]
     Indication: BIPOLAR DISORDER
     Dosage: 100MG PER DAY
     Route: 048
     Dates: start: 20090101, end: 20101217

REACTIONS (3)
  - RASH [None]
  - RASH PRURITIC [None]
  - RASH ERYTHEMATOUS [None]
